FAERS Safety Report 20836388 (Version 1)
Quarter: 2022Q2

REPORT INFORMATION
  Report Type: Spontaneous
  Country: IL (occurrence: IL)
  Receive Date: 20220517
  Receipt Date: 20220517
  Transmission Date: 20220721
  Serious: Yes (Other)
  Sender: FDA-Public Use
  Company Number: IL-NOVARTISPH-NVSC2022IL110309

PATIENT
  Age: 54 Year
  Sex: Female

DRUGS (1)
  1. LETROZOLE [Suspect]
     Active Substance: LETROZOLE
     Indication: Ovarian cancer metastatic
     Dosage: UNK
     Route: 065

REACTIONS (3)
  - Malignant neoplasm progression [Unknown]
  - Ovarian cancer metastatic [Unknown]
  - Product use in unapproved indication [Unknown]
